FAERS Safety Report 17198379 (Version 1)
Quarter: 2019Q4

REPORT INFORMATION
  Report Type: Spontaneous
  Country: US (occurrence: US)
  Receive Date: 20191225
  Receipt Date: 20191225
  Transmission Date: 20200122
  Serious: No
  Sender: FDA-Public Use
  Company Number: NVSC2019US077553

PATIENT

DRUGS (1)
  1. LETROZOL [Suspect]
     Active Substance: LETROZOLE
     Indication: PRODUCT USED FOR UNKNOWN INDICATION
     Dosage: UNK
     Route: 065

REACTIONS (8)
  - Lymphadenopathy [Recovering/Resolving]
  - Tendonitis [Not Recovered/Not Resolved]
  - Myalgia [Recovering/Resolving]
  - Back pain [Not Recovered/Not Resolved]
  - Joint swelling [Not Recovered/Not Resolved]
  - Muscle tightness [Recovering/Resolving]
  - Headache [Recovering/Resolving]
  - Ear discomfort [Recovering/Resolving]
